FAERS Safety Report 7294310-0 (Version None)
Quarter: 2011Q1

REPORT INFORMATION
  Report Type: 
  Country: None (occurrence: None)
  Receive Date: 20110215
  Receipt Date: 20110204
  Transmission Date: 20110831
  Serious: Yes (Hospitalization, Disabling, Other)
  Sender: FDA-Public Use
  Company Number: US-MERCK-1012USA00177

PATIENT
  Age: 52 Year
  Sex: Female
  Weight: 65 kg

DRUGS (2)
  1. FOSAMAX [Suspect]
     Indication: OSTEOPOROSIS
     Route: 048
     Dates: start: 20040420, end: 20080613
  2. BONIVA [Suspect]
     Indication: OSTEOPOROSIS
     Route: 065
     Dates: start: 20080613, end: 20080901

REACTIONS (36)
  - ANKLE FRACTURE [None]
  - TOOTH FRACTURE [None]
  - CHOLECYSTITIS ACUTE [None]
  - JAW DISORDER [None]
  - PERIODONTITIS [None]
  - HIATUS HERNIA [None]
  - ARTHRALGIA [None]
  - TOOTH ABSCESS [None]
  - ARTHRITIS [None]
  - ABSCESS [None]
  - LYMPHADENITIS [None]
  - HYPERTENSION [None]
  - MUSCLE STRAIN [None]
  - PYREXIA [None]
  - DIVERTICULUM [None]
  - BACK INJURY [None]
  - BRUXISM [None]
  - POLYP COLORECTAL [None]
  - EAR INFECTION [None]
  - OTITIS MEDIA [None]
  - GASTROOESOPHAGEAL REFLUX DISEASE [None]
  - OSTEOMYELITIS [None]
  - HEPATIC NEOPLASM MALIGNANT [None]
  - DRUG HYPERSENSITIVITY [None]
  - ORAL HERPES [None]
  - SINUSITIS [None]
  - INSOMNIA [None]
  - SPINAL DISORDER [None]
  - CANDIDIASIS [None]
  - OSTEONECROSIS OF JAW [None]
  - GALLBLADDER DISORDER [None]
  - DENTAL CARIES [None]
  - HAEMORRHOIDS [None]
  - GINGIVAL SWELLING [None]
  - ROAD TRAFFIC ACCIDENT [None]
  - BARRETT'S OESOPHAGUS [None]
